FAERS Safety Report 17262799 (Version 1)
Quarter: 2020Q1

REPORT INFORMATION
  Report Type: Report from Study
  Country: US (occurrence: US)
  Receive Date: 20200113
  Receipt Date: 20200113
  Transmission Date: 20200409
  Serious: No
  Sender: FDA-Public Use
  Company Number: US-CELGENEUS-USA-20200102363

PATIENT
  Age: 81 Year
  Sex: Female
  Weight: 89.89 kg

DRUGS (2)
  1. AZACITIDINE. [Suspect]
     Active Substance: AZACITIDINE
     Indication: MYELODYSPLASTIC SYNDROME
     Dosage: 151 MILLIGRAM
     Route: 058
     Dates: start: 20191014, end: 20191110
  2. AZACITIDINE. [Suspect]
     Active Substance: AZACITIDINE
     Dosage: 153 MILLIGRAM
     Route: 058
     Dates: start: 20191111, end: 20200106

REACTIONS (2)
  - Neutropenia [Not Recovered/Not Resolved]
  - Epistaxis [Not Recovered/Not Resolved]

NARRATIVE: CASE EVENT DATE: 201910
